FAERS Safety Report 7290141-6 (Version None)
Quarter: 2011Q1

REPORT INFORMATION
  Report Type: 
  Country: None (occurrence: None)
  Receive Date: 20110209
  Receipt Date: 20110209
  Transmission Date: 20110831
  Serious: Yes (Other)
  Sender: FDA-Public Use
  Company Number: None

PATIENT
  Age: 7 Year
  Sex: Male
  Weight: 26.25 kg

DRUGS (4)
  1. ACETAMINPHEN [Concomitant]
  2. DIPHENHYDRAMINE PREMEDS [Concomitant]
  3. PRIVIGEN [Suspect]
     Indication: IDIOPATHIC THROMBOCYTOPENIC PURPURA
     Dosage: 25G ONCE IV
     Route: 042
     Dates: start: 20110114, end: 20110114
  4. PRIVIGEN [Suspect]

REACTIONS (5)
  - HEADACHE [None]
  - PHOTOPHOBIA [None]
  - BLOOD PRESSURE DECREASED [None]
  - NAUSEA [None]
  - VOMITING [None]
